FAERS Safety Report 8794450 (Version 1)
Quarter: 2012Q4

REPORT INFORMATION
  Report Type: 
  Country: AU (occurrence: AU)
  Receive Date: 20120917
  Receipt Date: 20120917
  Transmission Date: 20130627
  Serious: Yes (Congenital Anomaly, Other)
  Sender: FDA-Public Use
  Company Number: AU-009507513-1109USA02963B1

PATIENT

DRUGS (2)
  1. ISENTRESS [Suspect]
     Route: 064
  2. COMBIVIR [Suspect]
     Indication: PROPHYLAXIS
     Route: 064

REACTIONS (2)
  - Plagiocephaly [Unknown]
  - Foetal exposure during pregnancy [Recovered/Resolved]
